FAERS Safety Report 25411394 (Version 1)
Quarter: 2025Q2

REPORT INFORMATION
  Report Type: Spontaneous
  Country: US (occurrence: US)
  Receive Date: 20250609
  Receipt Date: 20250609
  Transmission Date: 20250717
  Serious: Yes (Hospitalization, Other)
  Sender: APOTEX
  Company Number: US-APOTEX-2025AP008077

PATIENT
  Age: 60 Year
  Sex: Female

DRUGS (6)
  1. ZIPRASIDONE [Suspect]
     Active Substance: ZIPRASIDONE
     Indication: Confusional state
     Route: 065
  2. ZIPRASIDONE [Suspect]
     Active Substance: ZIPRASIDONE
     Indication: Behaviour disorder
     Route: 065
  3. DULOXETINE [Suspect]
     Active Substance: DULOXETINE
     Indication: Agitation
     Dosage: 60 MILLIGRAM, QD
     Route: 065
  4. LITHIUM [Suspect]
     Active Substance: LITHIUM
     Indication: Agitation
     Dosage: 450 MILLIGRAM, BID
     Route: 065
  5. LORAZEPAM [Suspect]
     Active Substance: LORAZEPAM
     Indication: Agitation
     Route: 065
  6. HALOPERIDOL [Suspect]
     Active Substance: HALOPERIDOL
     Indication: Agitation
     Route: 065

REACTIONS (4)
  - Neuroleptic malignant syndrome [Recovering/Resolving]
  - Rhabdomyolysis [Unknown]
  - Acute kidney injury [Unknown]
  - Dysphagia [Not Recovered/Not Resolved]
